FAERS Safety Report 9289372 (Version 2)
Quarter: 2013Q2

REPORT INFORMATION
  Report Type: Report from Study
  Country: JP (occurrence: JP)
  Receive Date: 20130514
  Receipt Date: 20130528
  Transmission Date: 20140414
  Serious: Yes (Hospitalization)
  Sender: FDA-Public Use
  Company Number: JP-BAXTER-2013BAX017781

PATIENT
  Age: 55 Year
  Sex: Female
  Weight: 38.5 kg

DRUGS (18)
  1. CYCLOPHOSPHAMIDE FOR INJECTION, USP [Suspect]
     Indication: BREAST CANCER
     Route: 042
     Dates: start: 20130111, end: 20130201
  2. CYCLOPHOSPHAMIDE FOR INJECTION, USP [Suspect]
     Route: 042
     Dates: start: 20130208
  3. CYCLOPHOSPHAMIDE FOR INJECTION, USP [Suspect]
     Route: 042
     Dates: start: 20130301, end: 20130322
  4. CYCLOPHOSPHAMIDE FOR INJECTION, USP [Suspect]
     Route: 042
     Dates: start: 20130329
  5. DOXORUBICIN [Suspect]
     Indication: BREAST CANCER
     Route: 042
     Dates: start: 20130111, end: 20130201
  6. DOXORUBICIN [Suspect]
     Route: 042
     Dates: start: 20130208
  7. DOXORUBICIN [Suspect]
     Route: 042
     Dates: start: 20130301, end: 20130322
  8. DOXORUBICIN [Suspect]
     Route: 042
     Dates: start: 20130329
  9. PALONOSETRON [Concomitant]
     Indication: PRODUCT USED FOR UNKNOWN INDICATION
     Route: 065
     Dates: start: 20130208, end: 20130329
  10. DEXAMETHASONE [Concomitant]
     Indication: PRODUCT USED FOR UNKNOWN INDICATION
     Route: 065
     Dates: start: 20130111, end: 20130329
  11. DEXAMETHASONE [Concomitant]
     Route: 065
     Dates: start: 20130112, end: 20130331
  12. DEXAMETHASONE [Concomitant]
     Route: 065
     Dates: start: 20130301
  13. APREPITANT [Concomitant]
     Indication: PRODUCT USED FOR UNKNOWN INDICATION
     Dosage: 80- 128 MG
     Route: 065
     Dates: start: 20130111, end: 20130331
  14. SENNOSIDES A AND B [Concomitant]
     Indication: PRODUCT USED FOR UNKNOWN INDICATION
     Dosage: 12-24 MG
     Route: 065
     Dates: start: 20130111
  15. SODIUM GUALENATE [Concomitant]
     Indication: PRODUCT USED FOR UNKNOWN INDICATION
     Route: 065
     Dates: start: 20130112, end: 20130331
  16. CIPROFLOXACIN HYDROCHLORIDE [Concomitant]
     Indication: PYREXIA
     Route: 048
     Dates: start: 20130413, end: 20130416
  17. LEVOFLOXACIN HYDRATE [Concomitant]
     Indication: PRODUCT USED FOR UNKNOWN INDICATION
     Route: 048
     Dates: start: 20130424
  18. MIDAZOLAM [Concomitant]
     Indication: PRODUCT USED FOR UNKNOWN INDICATION
     Route: 065

REACTIONS (1)
  - Lung infection [Recovered/Resolved]
